FAERS Safety Report 6042455-5 (Version None)
Quarter: 2009Q1

REPORT INFORMATION
  Report Type: 
  Country: None (occurrence: None)
  Receive Date: 20090116
  Receipt Date: 20090114
  Transmission Date: 20090719
  Serious: Yes (Hospitalization)
  Sender: FDA-Public Use
  Company Number: US-B.I. PHARMACEUTICALS,INC./RIDGEFIELD-2009-BP-00532BP

PATIENT
  Age: 70 Year
  Sex: Female

DRUGS (9)
  1. SPIRIVA [Suspect]
     Indication: CHRONIC OBSTRUCTIVE PULMONARY DISEASE
     Dosage: 18MCG
     Route: 055
     Dates: start: 20060101
  2. SPIRIVA [Suspect]
     Indication: BRONCHITIS
  3. SPIRIVA [Suspect]
     Indication: EMPHYSEMA
  4. ADVAIR DISKUS 100/50 [Concomitant]
     Indication: CHRONIC OBSTRUCTIVE PULMONARY DISEASE
     Route: 055
     Dates: start: 20081201
  5. ADVAIR DISKUS 100/50 [Concomitant]
     Indication: EMPHYSEMA
  6. ADVAIR DISKUS 100/50 [Concomitant]
     Indication: BRONCHITIS
  7. ALBUTEROL [Concomitant]
     Indication: CHRONIC OBSTRUCTIVE PULMONARY DISEASE
     Route: 055
  8. ALBUTEROL [Concomitant]
     Indication: EMPHYSEMA
  9. ALBUTEROL [Concomitant]
     Indication: BRONCHITIS

REACTIONS (4)
  - DYSPNOEA [None]
  - ORAL CANDIDIASIS [None]
  - PNEUMONIA [None]
  - PRODUCTIVE COUGH [None]
